APPROVED DRUG PRODUCT: BANZEL
Active Ingredient: RUFINAMIDE
Strength: 400MG
Dosage Form/Route: TABLET;ORAL
Application: N021911 | Product #003 | TE Code: AB
Applicant: EISAI INC
Approved: Nov 14, 2008 | RLD: Yes | RS: Yes | Type: RX